FAERS Safety Report 11519579 (Version 2)
Quarter: 2015Q3

REPORT INFORMATION
  Report Type: Report from Study
  Country: US (occurrence: US)
  Receive Date: 20150918
  Receipt Date: 20150930
  Transmission Date: 20151125
  Serious: Yes (Other)
  Sender: FDA-Public Use
  Company Number: PHEH2015US010577

PATIENT
  Age: 23 Year
  Sex: Female
  Weight: 68.27 kg

DRUGS (7)
  1. NAPROXEN SODIUM. [Concomitant]
     Active Substance: NAPROXEN SODIUM
     Indication: PRODUCT USED FOR UNKNOWN INDICATION
     Route: 065
  2. VITAMIN D [Concomitant]
     Active Substance: CHOLECALCIFEROL
     Indication: VITAMIN D DEFICIENCY
     Route: 065
  3. GILENYA [Suspect]
     Active Substance: FINGOLIMOD HYDROCHLORIDE
     Dosage: 0.5 MG, QD
     Route: 048
     Dates: start: 20130913
  4. GILENYA [Suspect]
     Active Substance: FINGOLIMOD HYDROCHLORIDE
     Dosage: 0.5 MG, QOD
     Route: 048
     Dates: start: 201405, end: 201502
  5. GILENYA [Suspect]
     Active Substance: FINGOLIMOD HYDROCHLORIDE
     Indication: MULTIPLE SCLEROSIS
     Dosage: 0.5 MG, QD
     Route: 048
     Dates: start: 2011
  6. TROPICAMIDE. [Concomitant]
     Active Substance: TROPICAMIDE
     Indication: MYDRIASIS
     Route: 065
  7. GILENYA [Suspect]
     Active Substance: FINGOLIMOD HYDROCHLORIDE
     Dosage: 0.5 MG, QOD
     Route: 048
     Dates: start: 20150523

REACTIONS (26)
  - Sinus bradycardia [Unknown]
  - Muscular weakness [Unknown]
  - Neutropenia [Unknown]
  - Vitamin D deficiency [Unknown]
  - Bowel movement irregularity [Unknown]
  - Mydriasis [Unknown]
  - Dizziness [Unknown]
  - Dyspnoea [Unknown]
  - Visual impairment [Unknown]
  - Gait disturbance [Unknown]
  - Palpitations [Unknown]
  - Prescribed underdose [Unknown]
  - Central nervous system lesion [Unknown]
  - Paraesthesia [Recovered/Resolved]
  - Optic atrophy [Unknown]
  - Myopia [Unknown]
  - Optic neuritis [Unknown]
  - Chest pain [Unknown]
  - Abdominal pain [Unknown]
  - Fatigue [Unknown]
  - Leukopenia [Unknown]
  - Blood pressure decreased [Unknown]
  - Urinary tract infection [Unknown]
  - Headache [Unknown]
  - Hypoaesthesia [Recovered/Resolved]
  - Pain [Unknown]

NARRATIVE: CASE EVENT DATE: 20121207
